FAERS Safety Report 4433738-0 (Version None)
Quarter: 2004Q3

REPORT INFORMATION
  Report Type: 
  Country: None (occurrence: None)
  Receive Date: 20040826
  Receipt Date: 20030929
  Transmission Date: 20050211
  Serious: Yes (Hospitalization, Other)
  Sender: FDA-Public Use
  Company Number: US-MERCK-0310USA00103

PATIENT
  Age: 40 Year
  Sex: Female
  Weight: 133 kg

DRUGS (4)
  1. CELEBREX [Concomitant]
     Route: 065
  2. AVALIDE [Concomitant]
     Route: 065
  3. PREDNISONE [Concomitant]
     Route: 065
  4. VIOXX [Suspect]
     Indication: ARTHRITIS
     Route: 048
     Dates: start: 20000101, end: 20020101

REACTIONS (22)
  - ABDOMINAL DISTENSION [None]
  - ABDOMINAL PAIN [None]
  - CARDIAC MURMUR [None]
  - CHROMATURIA [None]
  - DIARRHOEA [None]
  - DYSPEPSIA [None]
  - DYSPNOEA [None]
  - DYSURIA [None]
  - FAECES DISCOLOURED [None]
  - FLANK PAIN [None]
  - GASTRITIS [None]
  - HEADACHE [None]
  - HEART RATE IRREGULAR [None]
  - HYPERTENSION [None]
  - NODULE [None]
  - ORTHOPNOEA [None]
  - PANIC DISORDER [None]
  - RASH [None]
  - SWELLING [None]
  - SYSTEMIC LUPUS ERYTHEMATOSUS [None]
  - THROMBOSIS [None]
  - VASCULITIS [None]
